FAERS Safety Report 24618855 (Version 1)
Quarter: 2024Q4

REPORT INFORMATION
  Report Type: Spontaneous
  Country: AT (occurrence: AT)
  Receive Date: 20241114
  Receipt Date: 20241114
  Transmission Date: 20250115
  Serious: Yes (Other)
  Sender: PFIZER
  Company Number: AT-JNJFOC-20241081140

PATIENT
  Age: 86 Year
  Sex: Female

DRUGS (2)
  1. RITUXIMAB [Suspect]
     Active Substance: RITUXIMAB
     Indication: Mantle cell lymphoma
     Dosage: 1ST CYCLE
     Route: 065
     Dates: start: 20241021, end: 20241023
  2. IMBRUVICA [Suspect]
     Active Substance: IBRUTINIB
     Indication: Mantle cell lymphoma
     Dosage: 2 CYCLES OP
     Route: 048

REACTIONS (7)
  - Chronic kidney disease [Unknown]
  - Type 2 diabetes mellitus [Unknown]
  - Diastolic dysfunction [Unknown]
  - Hypertension [Unknown]
  - Sinus bradycardia [Unknown]
  - Obesity [Unknown]
  - Hypercholesterolaemia [Unknown]
